FAERS Safety Report 4387927-4 (Version None)
Quarter: 2004Q2

REPORT INFORMATION
  Report Type: 
  Country: None (occurrence: None)
  Receive Date: 20040607
  Receipt Date: 20031217
  Transmission Date: 20050107
  Serious: Yes (Other)
  Sender: FDA-Public Use
  Company Number: 354438

PATIENT
  Age: 18 Year
  Sex: Female
  Weight: 98.9 kg

DRUGS (9)
  1. ACCUTANE (ISOTRETIOIN) [Suspect]
     Indication: ACNE
     Dosage: 30 MG DAYLY ORAL
     Route: 048
     Dates: start: 20030922
  2. NA [Concomitant]
     Dosage: NA
  3. BIRTH CONTROL PILL (ORAL CONTRACEPTIVE NOS) [Concomitant]
  4. ALBUTEROL [Concomitant]
  5. ADVAIR DISKUS (FLUTICAASONE PROPIONATE/SALMETEROL XINAFOATE) [Concomitant]
  6. LEXAPRO [Concomitant]
  7. MERIDA (SIBUTRAMINE HYDROCHOLIDE) [Concomitant]
  8. ORTHO TRI-CYCLEN (ETHILNYL ESTRADIOL/ NORGESTIMATE) [Concomitant]
  9. PHENTERMINE [Concomitant]

REACTIONS (5)
  - ABDOMINAL PAIN [None]
  - ABNORMAL FAECES [None]
  - INFLAMMATORY BOWEL DISEASE [None]
  - LIVER DISORDER [None]
  - RECTAL HAEMORRHAGE [None]
